FAERS Safety Report 21939034 (Version 7)
Quarter: 2024Q1

REPORT INFORMATION
  Report Type: Report from Study
  Country: CA (occurrence: CA)
  Receive Date: 20230201
  Receipt Date: 20240209
  Transmission Date: 20240409
  Serious: Yes (Death, Other)
  Sender: FDA-Public Use
  Company Number: CA-HLS-202300119

PATIENT
  Age: 75 Year
  Sex: Male
  Weight: 66 kg

DRUGS (22)
  1. CLOZARIL [Suspect]
     Active Substance: CLOZAPINE
     Indication: Schizoaffective disorder
     Dosage: 100MG PO BID (AT SUPPER AND AT BEDTIME), TAKE 1 TABLET TWICE A DAY AT DINNER?AND REGULAR BEDTIME
     Route: 048
     Dates: start: 20120214
  2. CLOZARIL [Suspect]
     Active Substance: CLOZAPINE
     Indication: Tardive dyskinesia
     Dosage: 100MG PO BID (AT SUPPER AND AT BEDTIME), TAKE 1 TABLET TWICE A DAY AT DINNER?AND REGULAR BEDTIME
     Route: 048
     Dates: start: 20120214
  3. LITHIUM CARBONATE [Concomitant]
     Active Substance: LITHIUM CARBONATE
     Indication: Schizoaffective disorder
     Dosage: 900 MG PO ONCE A DAY (PRIOR TO OCT-18-2022 IT WAS AT 600MG DAILY): ?TAKE 1 CAPSULE ONCE A DAY AT BED
     Route: 048
  4. LITHIUM CARBONATE [Concomitant]
     Active Substance: LITHIUM CARBONATE
     Indication: Schizoaffective disorder
     Dosage: 900MG : TAKE 1 CAPSULE ONCE A DAY AT BED?(WITH CARBOLITH 300MG) .TOTAL 900MG/DAY.
     Route: 065
  5. ATROVENT [Concomitant]
     Active Substance: IPRATROPIUM BROMIDE
     Indication: Product used for unknown indication
     Dosage: 0.03% TWO REGULAR BID SPRAYS
     Route: 065
  6. PANTOPRAZOLE SODIUM [Concomitant]
     Active Substance: PANTOPRAZOLE SODIUM
     Indication: Product used for unknown indication
     Dosage: 40MG DAILY, TAKE 1 TABLET ONCE A DAY?IN THE MORNING
     Route: 065
  7. VITAMIN B12 [Concomitant]
     Active Substance: CYANOCOBALAMIN
     Indication: Product used for unknown indication
     Dosage: 1,200 MCG PER DAY, TAKE 1 TABLET DAILY WITH BREAKFAST (VITAMIN)
     Route: 065
  8. VITAMIN D [Concomitant]
     Active Substance: VITAMIN D NOS
     Indication: Vitamin D decreased
     Dosage: 1,000 UNITS PO PER DAY, TAKE 1 CAPSULE DAILY WITH BREAKFAST (VITAMIN)
     Route: 048
  9. DOMPERIDONE [Concomitant]
     Active Substance: DOMPERIDONE
     Indication: Product used for unknown indication
     Dosage: TID BEFORE MEALS, TAKE 1 TABLET 3 TIMES A DAY?30 MINUTES BEFORE MEALS
     Route: 065
  10. HALDOL [Concomitant]
     Active Substance: HALOPERIDOL
     Indication: Aggression
     Dosage: 0.5MG ONE OR TWO TABLETS BID PRN, ?TAKE 1 TO 2 TABLETS TWICE A DAY?IF NEEDED IF RESTLESSNESS/AGGRESS
     Route: 065
  11. HALDOL [Concomitant]
     Active Substance: HALOPERIDOL
     Indication: Agitation
     Dosage: 0.5MG ONE OR TWO TABLETS BID PRN, ?TAKE 1 TO 2 TABLETS TWICE A DAY?IF NEEDED IF RESTLESSNESS/AGGRESS
     Route: 065
  12. COLACE [Concomitant]
     Active Substance: DOCUSATE SODIUM
     Indication: Constipation
     Dosage: 100MG PO ONCE DAILY
     Route: 048
  13. FORMOTEROL FUMARATE [Concomitant]
     Active Substance: FORMOTEROL FUMARATE
     Indication: Product used for unknown indication
     Dosage: TAKE 1 INHALATION 2 TIMES A DAY MORNING?AND EVENING REGULARLY (TAKE FIRST) , POWDER
     Route: 065
  14. LOXAPINE SUCCINATE [Concomitant]
     Active Substance: LOXAPINE SUCCINATE
     Indication: Product used for unknown indication
     Route: 065
  15. ALBUTEROL [Concomitant]
     Active Substance: ALBUTEROL
     Indication: Product used for unknown indication
     Route: 065
  16. ACLIDINIUM BROMIDE [Concomitant]
     Active Substance: ACLIDINIUM BROMIDE
     Indication: Product used for unknown indication
     Route: 065
  17. Senekot [Concomitant]
     Indication: Product used for unknown indication
     Route: 065
  18. SPIRIVA [Concomitant]
     Active Substance: TIOTROPIUM BROMIDE MONOHYDRATE
     Indication: Product used for unknown indication
     Dosage: 18 MCG, INHALE THE CONTENTS OF ONE CAPSULE 1 TIME PER DAY, POWDER
     Route: 065
  19. ISOPTO ATROPINE [Concomitant]
     Active Substance: ATROPINE SULFATE
     Indication: Product used for unknown indication
     Dosage: TAKE 1-2 DROPS UNDER THE TONGUE 3 TIMES A DAY
     Route: 065
  20. CIPROFLOXACIN [Concomitant]
     Active Substance: CIPROFLOXACIN
     Indication: Product used for unknown indication
     Dosage: APPLY IN THE RIGHT EYE 4 TIMES A DAY FOR 5 DAYS / - POSSIBILITY OF EXTENDING FOR 7 DAYS IF?NEEDED IF
     Route: 065
  21. CEFPROZIL [Concomitant]
     Active Substance: CEFPROZIL
     Indication: Infection
     Dosage: TAKE 1 TABLET TWICE A DAY WITH BREAKFAST?AND DINNER - FOR 10 DAYS (INFECTION)
     Route: 065
  22. LITHIUM [Concomitant]
     Active Substance: LITHIUM
     Indication: Product used for unknown indication
     Route: 065

REACTIONS (39)
  - Aggression [Unknown]
  - Anaemia [Unknown]
  - Decreased appetite [Recovering/Resolving]
  - Abnormal behaviour [Recovering/Resolving]
  - Blood pressure increased [Unknown]
  - Underweight [Unknown]
  - Cognitive disorder [Unknown]
  - Conjunctivitis [Unknown]
  - Constipation [Unknown]
  - COVID-19 [Unknown]
  - Blood creatinine decreased [Unknown]
  - Cytopenia [Unknown]
  - Death [Fatal]
  - Diarrhoea [Recovered/Resolved]
  - Aphasia [Not Recovered/Not Resolved]
  - Neutrophil count decreased [Not Recovered/Not Resolved]
  - Dysphagia [Unknown]
  - Gastritis [Unknown]
  - Gamma-glutamyltransferase decreased [Unknown]
  - Ideas of reference [Unknown]
  - Denture wearer [Unknown]
  - Dyskinesia [Unknown]
  - Leukaemia [Unknown]
  - Life expectancy shortened [Unknown]
  - Mobility decreased [Unknown]
  - Myelodysplastic syndrome [Unknown]
  - Off label use [Unknown]
  - Activated partial thromboplastin time prolonged [Unknown]
  - Psychomotor hyperactivity [Unknown]
  - Lung neoplasm [Unknown]
  - Schizoaffective disorder bipolar type [Recovered/Resolved]
  - Pneumonia [Unknown]
  - Salivary hypersecretion [Unknown]
  - Tardive dyskinesia [Unknown]
  - Tobacco user [Not Recovered/Not Resolved]
  - Blood thyroid stimulating hormone increased [Unknown]
  - Vitamin D decreased [Unknown]
  - Leukopenia [Not Recovered/Not Resolved]
  - Asthenia [Unknown]

NARRATIVE: CASE EVENT DATE: 20130101
